FAERS Safety Report 7146285-2 (Version None)
Quarter: 2010Q4

REPORT INFORMATION
  Report Type: 
  Country: None (occurrence: None)
  Receive Date: 20101208
  Receipt Date: 20101201
  Transmission Date: 20110411
  Serious: Yes (Hospitalization, Other)
  Sender: FDA-Public Use
  Company Number: US-AMGEN-QUU424976

PATIENT

DRUGS (2)
  1. NPLATE [Suspect]
     Indication: IDIOPATHIC THROMBOCYTOPENIC PURPURA
     Dosage: 9 A?G/KG, QWK
     Dates: start: 20090511, end: 20100715
  2. AZATHIOPRINE [Concomitant]
     Dosage: UNK UNK, UNK
     Dates: start: 20100504, end: 20100607

REACTIONS (5)
  - ANAEMIA [None]
  - APLASTIC ANAEMIA [None]
  - BONE MARROW DISORDER [None]
  - BONE MARROW RETICULIN FIBROSIS [None]
  - PANCYTOPENIA [None]
